FAERS Safety Report 9088459 (Version 1)
Quarter: 2013Q1

REPORT INFORMATION
  Report Type: Report from Study
  Country: US (occurrence: US)
  Receive Date: 20130201
  Receipt Date: 20130201
  Transmission Date: 20140127
  Serious: No
  Sender: FDA-Public Use
  Company Number: US-ABBOTT-12P-163-1023884-00

PATIENT
  Age: 53 Year
  Sex: Female

DRUGS (28)
  1. HUMIRA [Suspect]
     Indication: RHEUMATOID ARTHRITIS
     Route: 058
     Dates: start: 20121205
  2. IRON [Concomitant]
     Indication: SUPPLEMENTATION THERAPY
     Dosage: 65 MG 1-2 PER DAY
  3. SYNTHROID [Concomitant]
     Indication: HYPOTHYROIDISM
     Dosage: DAILY
  4. RESTASIS [Concomitant]
     Indication: DRY EYE
     Dosage: 1 DROP IN EACH EYE
  5. FLUOXETINE HCL [Concomitant]
     Indication: DEPRESSION
  6. FLUOXETINE HCL [Concomitant]
     Indication: ANXIETY
  7. FLUTICASONE PROPIONATE [Concomitant]
     Indication: HYPERSENSITIVITY
     Dosage: 1-2 SPRAYS IN EACH NOSTRIL DAILY
  8. OMEPRAZOLE [Concomitant]
     Indication: GASTROOESOPHAGEAL REFLUX DISEASE
     Dosage: DAILY
  9. PROBIOTIC [Concomitant]
     Indication: GASTROOESOPHAGEAL REFLUX DISEASE
  10. TRIAM HCTZ [Concomitant]
     Indication: HYPERTENSION
     Dosage: 37.5/25 MG DAILY
  11. TORSEMIDE [Concomitant]
     Indication: JOINT SWELLING
  12. MUCINEX [Concomitant]
     Indication: NASAL CONGESTION
  13. ASPIRIN [Concomitant]
     Indication: PROPHYLAXIS
     Dosage: DAILY
  14. METHOTREXATE [Concomitant]
     Indication: RHEUMATOID ARTHRITIS
     Dosage: 8 PILLS EVERY WED
  15. SULFASALAZINE [Concomitant]
     Indication: RHEUMATOID ARTHRITIS
     Dosage: 2 IN THE MORNING AND 1 AT NIGHT
  16. MOVE FREE [Concomitant]
     Indication: ARTHROPATHY
     Dosage: DAILY
  17. PROAIR HFA [Concomitant]
     Indication: ASTHMA
     Dosage: AS NEEDED
  18. TYLENOL [Concomitant]
     Indication: PAIN
  19. LYRICA [Concomitant]
     Indication: FIBROMYALGIA
     Dosage: AT NIGHT
  20. SINGULAIR [Concomitant]
     Indication: ASTHMA
     Dosage: AT NIGHT
  21. SINGULAIR [Concomitant]
     Indication: HYPERSENSITIVITY
  22. CRESTOR [Concomitant]
     Indication: BLOOD CHOLESTEROL INCREASED
     Dosage: AT NIGHT
  23. PHENTERMINE [Concomitant]
     Indication: WEIGHT DECREASED
     Dosage: DAILY
  24. FISH OIL [Concomitant]
     Indication: PRODUCT USED FOR UNKNOWN INDICATION
  25. CENTRUM SILVER ADULTS 50+ [Concomitant]
     Indication: PRODUCT USED FOR UNKNOWN INDICATION
     Dosage: DAILY
  26. CALCIUM [Concomitant]
     Indication: PRODUCT USED FOR UNKNOWN INDICATION
  27. D3 [Concomitant]
     Indication: PRODUCT USED FOR UNKNOWN INDICATION
  28. IRON [Concomitant]
     Indication: SUPPLEMENTATION THERAPY
     Dosage: 1-2 PER DAY

REACTIONS (1)
  - Injection site pain [Recovered/Resolved]
